FAERS Safety Report 20219477 (Version 1)
Quarter: 2021Q4

REPORT INFORMATION
  Report Type: Spontaneous
  Country: US (occurrence: US)
  Receive Date: 20211222
  Receipt Date: 20211222
  Transmission Date: 20220303
  Serious: Yes (Other)
  Sender: FDA-Public Use
  Company Number: US-GLAXOSMITHKLINE-USCH2021GSK023560

PATIENT
  Age: 44 Year
  Sex: Male
  Weight: 90.703 kg

DRUGS (7)
  1. PREVACID 24 HR [Suspect]
     Active Substance: LANSOPRAZOLE
     Indication: Gastrooesophageal reflux disease
     Dosage: UNKNOWN, UNKNOWN
     Route: 048
  2. LANSOPRAZOLE [Suspect]
     Active Substance: LANSOPRAZOLE
     Indication: Gastrooesophageal reflux disease
     Dosage: 30 MG, UNKNOWN
     Route: 065
     Dates: start: 20140521, end: 20170106
  3. OMEPRAZOLE [Suspect]
     Active Substance: OMEPRAZOLE
     Indication: Gastrooesophageal reflux disease
     Dosage: 20 MG, UNKNOWN
     Route: 065
     Dates: start: 2003, end: 2019
  4. OMEPRAZOLE [Suspect]
     Active Substance: OMEPRAZOLE
     Dosage: 20 MG, UNKNOWN
     Route: 065
     Dates: start: 20110427, end: 20190219
  5. PANTOPRAZOLE [Suspect]
     Active Substance: PANTOPRAZOLE
     Indication: Gastrooesophageal reflux disease
     Dosage: 40 MG, UNKNOWN
     Route: 065
     Dates: start: 20121022, end: 20190723
  6. PANTOPRAZOLE [Suspect]
     Active Substance: PANTOPRAZOLE
     Dosage: 40 MG, UNKNOWN
     Route: 065
     Dates: start: 2012
  7. PRILOSEC [Suspect]
     Active Substance: OMEPRAZOLE MAGNESIUM
     Indication: Gastrooesophageal reflux disease
     Dosage: UNKNOWN, UNKNOWN
     Route: 065

REACTIONS (18)
  - Adenocarcinoma gastric [Not Recovered/Not Resolved]
  - Gastric cancer [Unknown]
  - Gastric neoplasm [Unknown]
  - Renal failure [Unknown]
  - Intestinal metaplasia [Unknown]
  - Gastrectomy [Recovered/Resolved]
  - Gastroenterostomy [Recovered/Resolved]
  - Omentectomy [Recovered/Resolved]
  - Gastric ulcer [Unknown]
  - Rebound acid hypersecretion [Not Recovered/Not Resolved]
  - Gastric disorder [Unknown]
  - Epigastric discomfort [Unknown]
  - Abdominal pain [Unknown]
  - Gastritis [Unknown]
  - Oesophagitis [Unknown]
  - Dyspepsia [Unknown]
  - Depression [Unknown]
  - Anxiety [Unknown]

NARRATIVE: CASE EVENT DATE: 20171215
